FAERS Safety Report 9010525 (Version 2)
Quarter: 2013Q1

REPORT INFORMATION
  Report Type: Spontaneous
  Country: DE (occurrence: DE)
  Receive Date: 20130109
  Receipt Date: 20130208
  Transmission Date: 20140127
  Serious: Yes (Death)
  Sender: FDA-Public Use
  Company Number: DE-JNJFOC-20130100109

PATIENT
  Sex: Female

DRUGS (6)
  1. DUROGESIC SMAT [Suspect]
     Indication: RADICULOPATHY
     Route: 062
  2. DUROGESIC SMAT [Suspect]
     Indication: RADICULOPATHY
     Route: 062
  3. DUROGESIC SMAT [Suspect]
     Indication: RADICULOPATHY
     Route: 062
     Dates: end: 2007
  4. DUROGESIC SMAT [Suspect]
     Indication: RADICULOPATHY
     Route: 062
     Dates: start: 2004
  5. FENTANYL [Suspect]
     Indication: PRODUCT USED FOR UNKNOWN INDICATION
     Route: 062
  6. PHENYTOIN [Concomitant]
     Indication: EPILEPSY
     Route: 065

REACTIONS (2)
  - Death [Fatal]
  - Intentional drug misuse [Unknown]
